FAERS Safety Report 4477389-0 (Version None)
Quarter: 2004Q4

REPORT INFORMATION
  Report Type: 
  Country: None (occurrence: None)
  Receive Date: 20041013
  Receipt Date: 20040928
  Transmission Date: 20050328
  Serious: Yes (Life-Threatening)
  Sender: FDA-Public Use
  Company Number: EWC041040831

PATIENT
  Age: 62 Year
  Sex: Female

DRUGS (3)
  1. FLUOXETINE [Suspect]
     Dosage: 20 MG/1 DAY
     Dates: start: 20030912
  2. DEXAMETHASONE [Concomitant]
  3. ZANTAC [Concomitant]

REACTIONS (1)
  - OPERATIVE HAEMORRHAGE [None]
